FAERS Safety Report 9379813 (Version 1)
Quarter: 2013Q3

REPORT INFORMATION
  Report Type: Spontaneous
  Country: US (occurrence: None)
  Receive Date: 20130701
  Receipt Date: 20130701
  Transmission Date: 20140515
  Serious: No
  Sender: FDA-Public Use
  Company Number: None

PATIENT
  Age: 60 Year
  Sex: Male
  Weight: 53 kg

DRUGS (1)
  1. RILPIVIRINE [Suspect]
     Indication: INFECTION
     Dosage: 1 TAB
     Route: 048
     Dates: start: 20130410, end: 20130414

REACTIONS (2)
  - Pruritus generalised [None]
  - Rash [None]
